FAERS Safety Report 8020175-5 (Version None)
Quarter: 2012Q1

REPORT INFORMATION
  Report Type: 
  Country: None (occurrence: None)
  Receive Date: 20120103
  Receipt Date: 20111024
  Transmission Date: 20120608
  Serious: No
  Sender: FDA-Public Use
  Company Number: US-COVIDIEN/TYCO HEALTHCARE/MALLINCKRODT-T201102305

PATIENT

DRUGS (6)
  1. ANAFRANIL CAP [Suspect]
     Dosage: 25 MG, QD
  2. SEROQUEL [Concomitant]
  3. ZOCOR [Concomitant]
  4. B COMPLEX                          /00212701/ [Concomitant]
  5. ANAFRANIL CAP [Suspect]
     Indication: DEPRESSION
     Dosage: 50 MG, QD
     Dates: start: 20111001, end: 20111023
  6. OXAZEPAM [Concomitant]

REACTIONS (2)
  - HYPERSOMNIA [None]
  - DRUG INEFFECTIVE [None]
